FAERS Safety Report 4669532-5 (Version None)
Quarter: 2005Q2

REPORT INFORMATION
  Report Type: 
  Country: None (occurrence: None)
  Receive Date: 20050523
  Receipt Date: 20050518
  Transmission Date: 20051028
  Serious: Yes (Hospitalization)
  Sender: FDA-Public Use
  Company Number: PHBS2005NL06972

PATIENT
  Age: 83 Year
  Sex: Female

DRUGS (5)
  1. RIVASTIGMINE [Suspect]
  2. NITROFURANTOIN [Concomitant]
  3. IRBESARTAN [Concomitant]
  4. LEVOTHYROXINE SODIUM [Concomitant]
  5. INSULIN [Concomitant]

REACTIONS (3)
  - COGWHEEL RIGIDITY [None]
  - PARKINSONISM [None]
  - TREMOR [None]
